FAERS Safety Report 21669983 (Version 1)
Quarter: 2022Q4

REPORT INFORMATION
  Report Type: Spontaneous
  Country: US (occurrence: US)
  Receive Date: 20221201
  Receipt Date: 20221201
  Transmission Date: 20230112
  Serious: No
  Sender: FDA-Public Use
  Company Number: US-JNJFOC-20221151362

PATIENT
  Sex: Female
  Weight: 61.744 kg

DRUGS (4)
  1. INVEGA SUSTENNA [Suspect]
     Active Substance: PALIPERIDONE PALMITATE
     Indication: Psychotic disorder
     Route: 030
     Dates: start: 202203, end: 2022
  2. INVEGA SUSTENNA [Suspect]
     Active Substance: PALIPERIDONE PALMITATE
     Route: 030
     Dates: start: 2022, end: 2022
  3. INVEGA SUSTENNA [Suspect]
     Active Substance: PALIPERIDONE PALMITATE
     Dosage: 139 OR 132MG
     Route: 030
     Dates: start: 2022, end: 2022
  4. INVEGA SUSTENNA [Suspect]
     Active Substance: PALIPERIDONE PALMITATE
     Route: 030
     Dates: start: 2022

REACTIONS (9)
  - Chest pain [Unknown]
  - Bedridden [Unknown]
  - Fatigue [Unknown]
  - Asthenia [Unknown]
  - Weight increased [Unknown]
  - Antinuclear antibody positive [Unknown]
  - Loss of personal independence in daily activities [Unknown]
  - Myalgia [Unknown]
  - Off label use [Unknown]

NARRATIVE: CASE EVENT DATE: 20220101
